FAERS Safety Report 8375693-7 (Version None)
Quarter: 2012Q2

REPORT INFORMATION
  Report Type: 
  Country: None (occurrence: None)
  Receive Date: 20120522
  Receipt Date: 20120517
  Transmission Date: 20120825
  Serious: No
  Sender: FDA-Public Use
  Company Number: US-PFIZER INC-2012065557

PATIENT
  Sex: Female

DRUGS (1)
  1. PREGABALIN [Suspect]
     Indication: EPILEPSY
     Dosage: 150 MG, 2X/DAY

REACTIONS (1)
  - INFERTILITY FEMALE [None]
